FAERS Safety Report 14078645 (Version 1)
Quarter: 2017Q4

REPORT INFORMATION
  Report Type: Spontaneous
  Country: US (occurrence: US)
  Receive Date: 20171012
  Receipt Date: 20171012
  Transmission Date: 20180321
  Serious: Yes (Hospitalization, Disabling)
  Sender: FDA-Public Use
  Company Number: None

PATIENT
  Sex: Male
  Weight: 69.75 kg

DRUGS (12)
  1. PACEMAKER [Concomitant]
  2. LOW DOSE ASPRIN [Concomitant]
     Active Substance: ASPIRIN
  3. OMNIPRAZOLI [Concomitant]
  4. HEARING AIDS [Concomitant]
  5. FISH OIL [Concomitant]
     Active Substance: FISH OIL
  6. CIPRO [Suspect]
     Active Substance: CIPROFLOXACIN HYDROCHLORIDE
     Indication: BLOOD URINE PRESENT
     Dosage: ?          QUANTITY:12 TABLET(S);?
     Route: 048
     Dates: start: 20170930, end: 20171007
  7. CREON [Concomitant]
     Active Substance: PANCRELIPASE AMYLASE\PANCRELIPASE LIPASE\PANCRELIPASE PROTEASE
  8. MYCLOCLENE [Concomitant]
  9. VITAMIN B12 [Concomitant]
     Active Substance: CYANOCOBALAMIN
  10. CIPRO [Suspect]
     Active Substance: CIPROFLOXACIN HYDROCHLORIDE
     Indication: DIVERTICULITIS
     Dosage: ?          QUANTITY:12 TABLET(S);?
     Route: 048
     Dates: start: 20170930, end: 20171007
  11. CALCIUM [Concomitant]
     Active Substance: CALCIUM
  12. CENTRUM VITAMINS [Concomitant]

REACTIONS (1)
  - Dizziness [None]

NARRATIVE: CASE EVENT DATE: 20171006
